FAERS Safety Report 17045259 (Version 2)
Quarter: 2019Q4

REPORT INFORMATION
  Report Type: Spontaneous
  Country: US (occurrence: US)
  Receive Date: 20191118
  Receipt Date: 20191120
  Transmission Date: 20200122
  Serious: No
  Sender: FDA-Public Use
  Company Number: US-SHIRE-US201939144

PATIENT
  Age: 13 Month

DRUGS (1)
  1. GAMMAGARD LIQUID [Suspect]
     Active Substance: HUMAN IMMUNOGLOBULIN G
     Indication: ENCEPHALITIS
     Route: 042

REACTIONS (2)
  - Therapeutic response unexpected [Unknown]
  - Intentional product use issue [Unknown]
